FAERS Safety Report 8862009 (Version 1)
Quarter: 2012Q4

REPORT INFORMATION
  Report Type: Report from Study
  Country: JP (occurrence: JP)
  Receive Date: 20121025
  Receipt Date: 20121025
  Transmission Date: 20130627
  Serious: Yes (Death)
  Sender: FDA-Public Use
  Company Number: JP-009507513-2008SP007624

PATIENT
  Age: 46 Year
  Sex: Male
  Weight: 62 kg

DRUGS (15)
  1. TEMODAL [Suspect]
     Indication: GLIOMATOSIS CEREBRI
     Dosage: 150 mg/m2, QD
     Route: 048
     Dates: start: 20061130, end: 20061204
  2. TEMODAL [Suspect]
     Indication: GLIOMATOSIS CEREBRI
     Dosage: 200 mg/m2, QD
     Route: 048
     Dates: start: 20061228, end: 20070101
  3. TEMODAL [Suspect]
     Dosage: 200 mg/m2, QD
     Route: 048
     Dates: start: 20070125, end: 20070129
  4. TEMODAL [Suspect]
     Dosage: 200 mg/m2, QD
     Route: 048
     Dates: start: 20070222, end: 20070226
  5. TEMODAL [Suspect]
     Dosage: 200 mg/m2, QD
     Route: 048
     Dates: start: 20070315, end: 20070319
  6. TEMODAL [Suspect]
     Dosage: 200 mg/m2, QD
     Route: 048
     Dates: start: 20070419, end: 20070423
  7. TEMODAL [Suspect]
     Route: 048
     Dates: start: 20070521, end: 20070525
  8. TEMODAL [Suspect]
     Route: 048
     Dates: start: 20070618, end: 20070622
  9. TEMODAL [Suspect]
     Route: 048
     Dates: start: 20070720, end: 20070724
  10. BAKTAR [Concomitant]
     Indication: ANTIFUNGAL PROPHYLAXIS
     Route: 048
     Dates: end: 20070914
  11. BAKTAR [Concomitant]
     Indication: ANTIFUNGAL PROPHYLAXIS
     Dosage: Daily dosage unknown
     Route: 048
     Dates: end: 20080125
  12. ALEVIATIN [Concomitant]
     Dosage: Daily dosage unknown
     Route: 048
     Dates: end: 20080125
  13. GASTER [Concomitant]
  14. PREDNISOLONE [Concomitant]
     Dosage: Daily dosage unknown
     Route: 048
     Dates: start: 20060420, end: 20080125
  15. GASTER [Concomitant]
     Dosage: Daily dosage unknown
     Route: 048
     Dates: start: 20060420, end: 20080125

REACTIONS (9)
  - Disease progression [Fatal]
  - Anaemia [Not Recovered/Not Resolved]
  - White blood cell count decreased [Recovered/Resolved]
  - Platelet count decreased [Recovered/Resolved]
  - Hepatic function abnormal [Not Recovered/Not Resolved]
  - Hypoproteinaemia [Not Recovered/Not Resolved]
  - Glucose tolerance impaired [Recovered/Resolved]
  - Hypercholesterolaemia [Not Recovered/Not Resolved]
  - Hypernatraemia [Recovered/Resolved]
